FAERS Safety Report 10021915 (Version 1)
Quarter: 2014Q1

REPORT INFORMATION
  Report Type: Spontaneous
  Country: US (occurrence: None)
  Receive Date: 20140318
  Receipt Date: 20140318
  Transmission Date: 20141002
  Serious: Yes (Other)
  Sender: FDA-Public Use
  Company Number: None

PATIENT
  Age: 29 Year
  Sex: Male
  Weight: 88.91 kg

DRUGS (1)
  1. POTASSIUM [Suspect]
     Indication: DRUG DISPENSING ERROR
     Dates: start: 20140215, end: 20140315

REACTIONS (5)
  - Drug dispensing error [None]
  - Wrong drug administered [None]
  - Heart rate irregular [None]
  - Nausea [None]
  - Vomiting [None]
